FAERS Safety Report 5722622-8 (Version None)
Quarter: 2008Q2

REPORT INFORMATION
  Report Type: 
  Country: None (occurrence: None)
  Receive Date: 20080429
  Receipt Date: 20070726
  Transmission Date: 20081010
  Serious: No
  Sender: FDA-Public Use
  Company Number: US-ASTRAZENECA-2007UW18159

PATIENT
  Age: 45 Year
  Sex: Female

DRUGS (14)
  1. NEXIUM [Suspect]
     Indication: BARRETT'S OESOPHAGUS
     Route: 048
     Dates: start: 20061201, end: 20070201
  2. NEXIUM [Suspect]
     Route: 048
     Dates: start: 20070201, end: 20070501
  3. NEXIUM [Suspect]
     Route: 048
     Dates: start: 20070501
  4. DARVOCET [Concomitant]
  5. ADVAIR DISKUS 100/50 [Concomitant]
  6. SERTRALINE [Concomitant]
  7. INTAL [Concomitant]
  8. SPIRIVA [Concomitant]
  9. PROVENTIL [Concomitant]
  10. HFA [Concomitant]
  11. PREDNISONE [Concomitant]
  12. AVELOX [Concomitant]
  13. NAPROXEN [Concomitant]
  14. PROTONIX [Concomitant]
     Dates: start: 20070401

REACTIONS (3)
  - DRUG INEFFECTIVE [None]
  - OVERDOSE [None]
  - PH BODY FLUID ABNORMAL [None]
